FAERS Safety Report 15800417 (Version 1)
Quarter: 2019Q1

REPORT INFORMATION
  Report Type: Spontaneous
  Country: US (occurrence: US)
  Receive Date: 20190108
  Receipt Date: 20190108
  Transmission Date: 20190417
  Serious: No
  Sender: FDA-Public Use
  Company Number: US-UPSHER-SMITH LABORATORIES, LLC-2018USL00481

PATIENT
  Age: 9 Month
  Sex: Male
  Weight: 8.03 kg

DRUGS (4)
  1. VIGADRONE [Suspect]
     Active Substance: VIGABATRIN
     Indication: INFANTILE SPASMS
  2. TRILEPTAL [Concomitant]
     Active Substance: OXCARBAZEPINE
  3. KEPPRA [Concomitant]
     Active Substance: LEVETIRACETAM
  4. VIGADRONE [Suspect]
     Active Substance: VIGABATRIN
     Indication: PARTIAL SEIZURES
     Dosage: 500 MG, 2X/DAY
     Route: 048
     Dates: start: 20180920

REACTIONS (1)
  - Vomiting [Not Recovered/Not Resolved]

NARRATIVE: CASE EVENT DATE: 20180920
